FAERS Safety Report 7623080-9 (Version None)
Quarter: 2011Q3

REPORT INFORMATION
  Report Type: 
  Country: None (occurrence: None)
  Receive Date: 20110720
  Receipt Date: 20110718
  Transmission Date: 20111222
  Serious: Yes (Other)
  Sender: FDA-Public Use
  Company Number: AU-PFIZER INC-2011161432

PATIENT
  Age: 58 Year
  Sex: Male

DRUGS (1)
  1. VARENICLINE TARTRATE [Suspect]

REACTIONS (3)
  - MICTURITION URGENCY [None]
  - POLLAKIURIA [None]
  - URINARY RETENTION [None]
